FAERS Safety Report 14061832 (Version 3)
Quarter: 2017Q4

REPORT INFORMATION
  Report Type: Spontaneous
  Country: FR (occurrence: FR)
  Receive Date: 20171009
  Receipt Date: 20171018
  Transmission Date: 20180321
  Serious: Yes (Hospitalization, Other)
  Sender: FDA-Public Use
  Company Number: FR-009507513-1710FRA000981

PATIENT
  Age: 43 Year
  Sex: Male

DRUGS (3)
  1. TEMODAL [Suspect]
     Active Substance: TEMOZOLOMIDE
     Dosage: UNK, CYCLICAL
     Route: 048
     Dates: start: 20170804
  2. TEMODAL [Suspect]
     Active Substance: TEMOZOLOMIDE
     Indication: NEOPLASM
     Dosage: 150 MG/M2, CYCLICAL (FOR 5 DAYS)
     Route: 048
     Dates: start: 20170810, end: 20170814
  3. SOMATULINE LP [Concomitant]
     Active Substance: LANREOTIDE ACETATE
     Dosage: 1 PROLONGED RELEASE SOLUTION FOR INJECTION IN PRE-FILLED SYRINGE, PER MONTH
     Route: 058
     Dates: start: 2009

REACTIONS (4)
  - Hyperthermia [Recovered/Resolved]
  - Rash papular [Recovered/Resolved]
  - Cholestasis [Recovered/Resolved]
  - Hepatocellular injury [Recovered/Resolved]

NARRATIVE: CASE EVENT DATE: 20170814
